FAERS Safety Report 8534173-6 (Version None)
Quarter: 2012Q3

REPORT INFORMATION
  Report Type: 
  Country: None (occurrence: None)
  Receive Date: 20120724
  Receipt Date: 20120713
  Transmission Date: 20120928
  Serious: Yes (Death)
  Sender: FDA-Public Use
  Company Number: US-ACTELION-A-NJ2012-68738

PATIENT

DRUGS (5)
  1. TRACLEER [Suspect]
     Indication: PULMONARY ARTERIAL HYPERTENSION
     Route: 048
  2. DIGOXIN [Concomitant]
  3. SILDENAFIL [Concomitant]
     Dosage: UNK
  4. OXYGEN [Concomitant]
  5. FLOLAN [Concomitant]

REACTIONS (1)
  - DEATH [None]
